FAERS Safety Report 5279878-8 (Version None)
Quarter: 2007Q1

REPORT INFORMATION
  Report Type: 
  Country: None (occurrence: None)
  Receive Date: 20061215
  Receipt Date: 20060417
  Transmission Date: 20070707
  Serious: Yes (Hospitalization, Other)
  Sender: FDA-Public Use
  Company Number: HQWYE886520APR06

PATIENT
  Sex: Male

DRUGS (2)
  1. EFFEXOR XR [Suspect]
     Dosage: 37.5 MG (FREQUENCY UNKNOWN), ORAL
     Route: 048
  2. LYRICA [Concomitant]

REACTIONS (1)
  - GRAND MAL CONVULSION [None]
